FAERS Safety Report 11841859 (Version 1)
Quarter: 2015Q4

REPORT INFORMATION
  Report Type: Spontaneous
  Country: US (occurrence: US)
  Receive Date: 20151216
  Receipt Date: 20151216
  Transmission Date: 20160305
  Serious: No
  Sender: FDA-Public Use
  Company Number: US-RB-071844-15

PATIENT
  Age: 6 Year
  Sex: Male

DRUGS (2)
  1. DELSYM [Suspect]
     Active Substance: DEXTROMETHORPHAN
     Indication: PRODUCT USED FOR UNKNOWN INDICATION
     Dosage: 10ML. CONSUMER LAST USED THE PRODUCT ON 16-DEC-2014,FREQUENCY UNK
     Route: 065
     Dates: start: 20141216
  2. PREDNISONE. [Concomitant]
     Active Substance: PREDNISONE
     Indication: PRODUCT USED FOR UNKNOWN INDICATION
     Dosage: . UNKNOWN,FREQUENCY UNK
     Route: 065

REACTIONS (3)
  - Drug administered to patient of inappropriate age [None]
  - No adverse event [Recovered/Resolved]
  - Accidental overdose [Recovered/Resolved]

NARRATIVE: CASE EVENT DATE: 20141216
